FAERS Safety Report 9533655 (Version 1)
Quarter: 2013Q3

REPORT INFORMATION
  Report Type: Spontaneous
  Country: US (occurrence: US)
  Receive Date: 20130918
  Receipt Date: 20130918
  Transmission Date: 20140515
  Serious: Yes (Hospitalization)
  Sender: FDA-Public Use
  Company Number: US-JNJFOC-20130906220

PATIENT
  Sex: Female

DRUGS (4)
  1. SANDOZ FENTANYL TRANSDERMAL SYSTEM [Suspect]
     Indication: BACK PAIN
     Route: 062
  2. ESTRADIOL [Concomitant]
     Indication: HOT FLUSH
     Route: 048
  3. REMERON [Concomitant]
     Indication: INCREASED APPETITE
     Route: 048
     Dates: start: 2006
  4. PERIACTIN [Concomitant]
     Indication: INCREASED APPETITE
     Route: 048
     Dates: start: 201308

REACTIONS (2)
  - Intervertebral disc disorder [Recovered/Resolved]
  - Product quality issue [Unknown]
